FAERS Safety Report 4479714-3 (Version None)
Quarter: 2004Q4

REPORT INFORMATION
  Report Type: 
  Country: None (occurrence: None)
  Receive Date: 20041020
  Receipt Date: 20040219
  Transmission Date: 20050328
  Serious: Yes (Hospitalization)
  Sender: FDA-Public Use
  Company Number: FR-ROCHE-359139

PATIENT
  Age: 27 Year
  Sex: Female

DRUGS (6)
  1. NICARDIPINE HCL [Suspect]
     Indication: TOCOLYSIS
     Route: 041
     Dates: start: 20021130, end: 20021203
  2. SPASFON [Concomitant]
  3. SODIUM CHLORIDE INJ [Concomitant]
     Route: 041
  4. POTASSIUM CHLORIDE [Concomitant]
     Route: 041
  5. GLUCOSE [Concomitant]
     Indication: INFUSION
     Route: 041
  6. BETAMETHASONE [Concomitant]
     Route: 042

REACTIONS (13)
  - ACUTE RESPIRATORY DISTRESS SYNDROME [None]
  - BLOOD PRESSURE DIASTOLIC DECREASED [None]
  - BLOOD PRESSURE DIASTOLIC INCREASED [None]
  - BLOOD PRESSURE SYSTOLIC DECREASED [None]
  - BLOOD PRESSURE SYSTOLIC INCREASED [None]
  - C-REACTIVE PROTEIN INCREASED [None]
  - DRUG EXPOSURE DURING PREGNANCY [None]
  - LUNG DISORDER [None]
  - PERICARDIAL EFFUSION [None]
  - PREMATURE LABOUR [None]
  - PULMONARY OEDEMA [None]
  - RESPIRATORY ALKALOSIS [None]
  - WHITE BLOOD CELL COUNT INCREASED [None]
